FAERS Safety Report 23955181 (Version 1)
Quarter: 2024Q2

REPORT INFORMATION
  Report Type: Spontaneous
  Country: US (occurrence: US)
  Receive Date: 20240610
  Receipt Date: 20240610
  Transmission Date: 20240716
  Serious: Yes (Life-Threatening, Other)
  Sender: FDA-Public Use
  Company Number: US-GLENMARK PHARMACEUTICALS-2024GMK091197

PATIENT

DRUGS (5)
  1. GABAPENTIN [Suspect]
     Active Substance: GABAPENTIN
     Indication: Alcohol withdrawal syndrome
     Dosage: 1200 MILLIGRAM (LOADING DOSE)
     Route: 065
  2. GABAPENTIN [Suspect]
     Active Substance: GABAPENTIN
     Dosage: 800 MILLIGRAM, TID
     Route: 065
  3. CLONIDINE [Suspect]
     Active Substance: CLONIDINE
     Indication: Alcohol withdrawal syndrome
     Dosage: 0.2 MG/24 HR (2 TRANSDERMAL PATCHES)
     Route: 065
  4. CLONIDINE [Suspect]
     Active Substance: CLONIDINE
     Indication: Alcohol withdrawal syndrome
     Dosage: 0.1 MILLIGRAM, EVERY 8 HOURS
     Route: 048
  5. THIAMINE [Suspect]
     Active Substance: THIAMINE
     Indication: Alcohol withdrawal syndrome
     Dosage: UNK
     Route: 065

REACTIONS (3)
  - Posterior reversible encephalopathy syndrome [Recovering/Resolving]
  - Hypertension [Recovering/Resolving]
  - Therapeutic product effect incomplete [Unknown]
